FAERS Safety Report 8267420 (Version 3)
Quarter: 2013Q3

REPORT INFORMATION
  Report Type: Report from Study
  Country: US (occurrence: US)
  Receive Date: 20111129
  Receipt Date: 20130726
  Transmission Date: 20140515
  Serious: Yes (Death, Life-Threatening, Hospitalization, Other)
  Sender: FDA-Public Use
  Company Number: US-ELI_LILLY_AND_COMPANY-US201111007056

PATIENT
  Age: 79 Year
  Sex: Male

DRUGS (22)
  1. TERIPARATIDE [Suspect]
     Indication: OSTEOPOROSIS
     Dosage: 20 UG, QD
     Dates: start: 201105
  2. TERIPARATIDE [Suspect]
     Dosage: 20 UG, QD
  3. SINEMET [Concomitant]
  4. VITAMIN D [Concomitant]
  5. CALCIUM [Concomitant]
  6. LISINOPRIL [Concomitant]
     Dosage: 20 MG, QD
     Route: 048
  7. ATENOLOL [Concomitant]
     Dosage: 25 MG, QD
     Route: 048
  8. VITAMIN E [Concomitant]
  9. METFORMIN [Concomitant]
  10. BABY ASPIRIN [Concomitant]
  11. FUROSEMIDE [Concomitant]
     Dosage: 20 MG, 3/W
  12. SODIUM CHLORIDE [Concomitant]
  13. VITAMIN C [Concomitant]
  14. MULTIVITAMIN [Concomitant]
  15. B12-VITAMIN [Concomitant]
  16. FOLIC ACID [Concomitant]
  17. LIPITOR [Concomitant]
     Dosage: 20 MG, EACH EVENING
     Route: 048
  18. ASPIRIN [Concomitant]
     Dosage: 81 MG, QD
     Route: 048
  19. LUNESTA [Concomitant]
  20. LYRICA [Concomitant]
  21. CALTRATE [Concomitant]
  22. ACTOS [Concomitant]

REACTIONS (5)
  - Death [Fatal]
  - Myocardial infarction [Unknown]
  - Respiratory failure [Recovering/Resolving]
  - Pneumonia [Recovering/Resolving]
  - Coronary artery disease [Recovering/Resolving]
